FAERS Safety Report 10590896 (Version 1)
Quarter: 2014Q4

REPORT INFORMATION
  Report Type: Spontaneous
  Country: US (occurrence: US)
  Receive Date: 20141118
  Receipt Date: 20141118
  Transmission Date: 20150529
  Serious: No
  Sender: FDA-Public Use
  Company Number: US-009507513-1411USA000666

PATIENT
  Age: 9 Year
  Sex: Female
  Weight: 27.21 kg

DRUGS (2)
  1. CLARITIN [Suspect]
     Active Substance: LORATADINE
     Indication: SEASONAL ALLERGY
     Dosage: 10 MG, QAM
     Route: 048
     Dates: start: 2014
  2. BENADRYL [Concomitant]
     Active Substance: DIPHENHYDRAMINE HYDROCHLORIDE
     Indication: SLEEP DISORDER THERAPY
     Dosage: UNK, UNKNOWN

REACTIONS (2)
  - No adverse event [Unknown]
  - Accidental overdose [Unknown]

NARRATIVE: CASE EVENT DATE: 20141030
